FAERS Safety Report 6497460-1 (Version None)
Quarter: 2009Q4

REPORT INFORMATION
  Report Type: 
  Country: None (occurrence: None)
  Receive Date: 20091211
  Receipt Date: 20091207
  Transmission Date: 20100525
  Serious: Yes (Other)
  Sender: FDA-Public Use
  Company Number: ADR53072009

PATIENT
  Age: 60 Year
  Sex: Female

DRUGS (4)
  1. SIMVASTATIN [Suspect]
  2. QUETIAPINE [Concomitant]
  3. LITHIUM [Concomitant]
  4. CLARITHROMYCIN [Concomitant]

REACTIONS (2)
  - DISEASE RECURRENCE [None]
  - NEUROLEPTIC MALIGNANT SYNDROME [None]
